FAERS Safety Report 8556092-1 (Version None)
Quarter: 2012Q3

REPORT INFORMATION
  Report Type: 
  Country: None (occurrence: None)
  Receive Date: 20120801
  Receipt Date: 20120720
  Transmission Date: 20120928
  Serious: Yes (Other)
  Sender: FDA-Public Use
  Company Number: US-SANOFI-AVENTIS-2012SA042316

PATIENT
  Age: 29 Year
  Sex: Female
  Weight: 61 kg

DRUGS (5)
  1. HUMALOG [Concomitant]
     Indication: TYPE 1 DIABETES MELLITUS
     Dosage: 10-30IU/DAY
     Dates: start: 19990101
  2. FOLIC ACID [Concomitant]
     Dosage: 3-6 RDA/DAY
     Route: 048
     Dates: start: 20081101, end: 20090601
  3. LANTUS [Suspect]
     Indication: TYPE 1 DIABETES MELLITUS
     Dosage: RECEIVED INSULIN FOR THE ENTIRE PERIOD OF PREGNANCY. START DATE FROM 2006. DOSE 12 TO 35 IU/DAY
     Route: 058
     Dates: start: 20060101
  4. IRON [Concomitant]
     Dosage: 2PILLS/DAY
     Dates: start: 20081201, end: 20090601
  5. VITAMIN D [Concomitant]
     Dosage: 2 TABLETS COD LIVER OIL/DAY
     Dates: start: 20000101

REACTIONS (2)
  - MATERNAL EXPOSURE DURING PREGNANCY [None]
  - PRE-ECLAMPSIA [None]
